FAERS Safety Report 6195889-2 (Version None)
Quarter: 2009Q2

REPORT INFORMATION
  Report Type: 
  Country: None (occurrence: None)
  Receive Date: 20090520
  Receipt Date: 20090507
  Transmission Date: 20091009
  Serious: Yes (Other)
  Sender: FDA-Public Use
  Company Number: GB-ROCHE-632378

PATIENT
  Sex: Female
  Weight: 77.9 kg

DRUGS (5)
  1. XENICAL [Suspect]
     Indication: OBESITY
     Route: 048
     Dates: start: 20080827
  2. LEVOTHYROXINE SODIUM [Concomitant]
     Indication: HYPOTHYROIDISM
  3. SALBUTAMOL [Concomitant]
     Indication: ASTHMA
     Route: 055
  4. CHLORPHENIRAMINE MALEATE [Concomitant]
     Route: 048
  5. CETRIZINE [Concomitant]
     Route: 048

REACTIONS (1)
  - ANGLE CLOSURE GLAUCOMA [None]
